FAERS Safety Report 18881910 (Version 1)
Quarter: 2021Q1

REPORT INFORMATION
  Report Type: Spontaneous
  Country: CN (occurrence: CN)
  Receive Date: 20210212
  Receipt Date: 20210212
  Transmission Date: 20210420
  Serious: Yes (Other)
  Sender: FDA-Public Use
  Company Number: CN-ROCHE-2765747

PATIENT
  Age: 83 Year
  Sex: Male
  Weight: 60 kg

DRUGS (2)
  1. MABTHERA [Suspect]
     Active Substance: RITUXIMAB
     Indication: NEPHROTIC SYNDROME
     Route: 042
     Dates: start: 20210127, end: 20210127
  2. SODIUM CHLORIDE. [Concomitant]
     Active Substance: SODIUM CHLORIDE
     Route: 041
     Dates: start: 20210127, end: 20210127

REACTIONS (8)
  - Hypertension [Unknown]
  - Heart rate increased [Recovering/Resolving]
  - Abdominal pain [Recovering/Resolving]
  - Intentional product use issue [Unknown]
  - Tachypnoea [Recovering/Resolving]
  - Tremor [Recovering/Resolving]
  - Off label use [Unknown]
  - Body temperature increased [Recovered/Resolved]

NARRATIVE: CASE EVENT DATE: 20210127
